FAERS Safety Report 15367510 (Version 9)
Quarter: 2019Q3

REPORT INFORMATION
  Report Type: Report from Study
  Country: CA (occurrence: CA)
  Receive Date: 20180910
  Receipt Date: 20190719
  Transmission Date: 20191004
  Serious: Yes (Hospitalization)
  Sender: FDA-Public Use
  Company Number: PHHY2018CA003487

PATIENT
  Age: 66 Year
  Sex: Male

DRUGS (15)
  1. AUGMENTIN [Suspect]
     Active Substance: AMOXICILLIN\CLAVULANATE POTASSIUM
     Indication: STASIS DERMATITIS
     Dosage: 81 MG, UNK
     Route: 042
  2. ATORVASTATIN [Concomitant]
     Active Substance: ATORVASTATIN
     Indication: PRODUCT USED FOR UNKNOWN INDICATION
     Dosage: UNK
     Route: 065
     Dates: start: 2011
  3. CLOBETASOL [Concomitant]
     Active Substance: CLOBETASOL
     Indication: PRODUCT USED FOR UNKNOWN INDICATION
     Dosage: UNK
     Route: 061
     Dates: start: 201801
  4. COSENTYX [Suspect]
     Active Substance: SECUKINUMAB
     Dosage: 300 MG, QMO
     Route: 058
     Dates: start: 20180529
  5. COSENTYX [Suspect]
     Active Substance: SECUKINUMAB
     Dosage: 300 MG, QMO
     Route: 058
     Dates: start: 2018
  6. COSENTYX [Suspect]
     Active Substance: SECUKINUMAB
     Indication: PSORIASIS
     Dosage: 300 MG, QW
     Route: 058
     Dates: start: 20180501
  7. COSENTYX [Suspect]
     Active Substance: SECUKINUMAB
     Dosage: 300 MG, QW
     Route: 058
     Dates: start: 20180522
  8. FLUCLOXACILLIN [Suspect]
     Active Substance: FLUCLOXACILLIN
     Indication: STASIS DERMATITIS
     Dosage: 61 MG, UNK
     Route: 042
  9. PANTOPRAZOLE [Concomitant]
     Active Substance: PANTOPRAZOLE
     Indication: PRODUCT USED FOR UNKNOWN INDICATION
     Dosage: UNK
     Route: 065
     Dates: start: 2011
  10. DOVOBET [Concomitant]
     Active Substance: BETAMETHASONE\CALCIPOTRIENE
     Indication: PRODUCT USED FOR UNKNOWN INDICATION
     Route: 065
  11. PREDNISONE. [Concomitant]
     Active Substance: PREDNISONE
     Indication: PRODUCT USED FOR UNKNOWN INDICATION
     Dosage: UNK
     Route: 048
     Dates: start: 2016, end: 2018
  12. METOPROLOL. [Concomitant]
     Active Substance: METOPROLOL
     Indication: PSORIASIS
     Dosage: UNK
     Route: 065
     Dates: start: 2011
  13. METFORMIN [Concomitant]
     Active Substance: METFORMIN HYDROCHLORIDE
     Indication: PRODUCT USED FOR UNKNOWN INDICATION
     Dosage: UNK
     Route: 065
     Dates: start: 201801
  14. SORIATANE [Concomitant]
     Active Substance: ACITRETIN
     Indication: PRODUCT USED FOR UNKNOWN INDICATION
     Dosage: UNK
     Route: 065
  15. ACITRETIN. [Concomitant]
     Active Substance: ACITRETIN
     Indication: PRODUCT USED FOR UNKNOWN INDICATION
     Route: 065

REACTIONS (12)
  - Psoriasis [Recovering/Resolving]
  - Cough [Unknown]
  - Skin lesion [Recovering/Resolving]
  - Skin fissures [Recovering/Resolving]
  - Body temperature decreased [Unknown]
  - Stasis dermatitis [Unknown]
  - Localised infection [Unknown]
  - Skin exfoliation [Recovering/Resolving]
  - Drug ineffective [Unknown]
  - Blood pressure increased [Unknown]
  - Dry skin [Recovering/Resolving]
  - Red blood cell sedimentation rate increased [Unknown]

NARRATIVE: CASE EVENT DATE: 20180501
